FAERS Safety Report 5266774-5 (Version None)
Quarter: 2007Q1

REPORT INFORMATION
  Report Type: 
  Country: None (occurrence: None)
  Receive Date: 20070312
  Receipt Date: 20070227
  Transmission Date: 20070707
  Serious: Yes (Disabling)
  Sender: FDA-Public Use
  Company Number: SP01148

PATIENT
  Age: 51 Year
  Sex: Female
  Weight: 54.4316 kg

DRUGS (1)
  1. OSMOPREP [Suspect]
     Indication: COLONOSCOPY
     Dosage: 32 TABLETS, ORAL
     Route: 048
     Dates: start: 20070218, end: 20070218

REACTIONS (2)
  - COLITIS ISCHAEMIC [None]
  - ENTEROCOLITIS INFECTIOUS [None]
